FAERS Safety Report 4880145-2 (Version None)
Quarter: 2006Q1

REPORT INFORMATION
  Report Type: 
  Country: None (occurrence: None)
  Receive Date: 20060111
  Receipt Date: 20060105
  Transmission Date: 20060701
  Serious: Yes (Other)
  Sender: FDA-Public Use
  Company Number: 2006002781

PATIENT
  Age: 53 Year
  Sex: Male
  Weight: 121.564 kg

DRUGS (11)
  1. GLIPIZIDE [Suspect]
     Indication: ILL-DEFINED DISORDER
     Dosage: (10 MG, 1 IN 1 D), ORAL
     Route: 048
     Dates: end: 20051107
  2. BYETTA [Suspect]
     Indication: DIABETES MELLITUS NON-INSULIN-DEPENDENT
     Dosage: SEE IMAGE
     Dates: start: 20050907, end: 20051001
  3. BYETTA [Suspect]
     Indication: DIABETES MELLITUS NON-INSULIN-DEPENDENT
     Dosage: SEE IMAGE
     Dates: start: 20051001
  4. HYDROCHLOROTHIAZIDE [Suspect]
     Indication: ILL-DEFINED DISORDER
     Dosage: (25 MG, 1 IN 1 D), ORAL
     Route: 048
     Dates: start: 20050907, end: 20051107
  5. ZOCOR [Suspect]
     Indication: ILL-DEFINED DISORDER
     Dosage: (20 MG, 1 IN 1 D), ORAL
     Route: 048
     Dates: end: 20051107
  6. LOTENSIN [Concomitant]
  7. GLUCOPHAGE [Concomitant]
  8. ASPIRIN [Concomitant]
  9. VIAGRA [Concomitant]
  10. ADVIL [Concomitant]
  11. MULTIVITAMIN [Concomitant]

REACTIONS (2)
  - PANCREATITIS [None]
  - WEIGHT DECREASED [None]
